FAERS Safety Report 5676323-5 (Version None)
Quarter: 2008Q1

REPORT INFORMATION
  Report Type: 
  Country: None (occurrence: None)
  Receive Date: 20080321
  Receipt Date: 20080312
  Transmission Date: 20080703
  Serious: Yes (Other)
  Sender: FDA-Public Use
  Company Number: US-PFIZER INC-2008017996

PATIENT
  Sex: Male
  Weight: 72.7 kg

DRUGS (4)
  1. CHANTIX [Suspect]
     Indication: SMOKING CESSATION THERAPY
     Route: 048
     Dates: start: 20080204, end: 20080217
  2. OXYCONTIN [Concomitant]
  3. KLONOPIN [Concomitant]
  4. VICODIN [Concomitant]

REACTIONS (4)
  - ABNORMAL DREAMS [None]
  - COMMUNICATION DISORDER [None]
  - FEELING ABNORMAL [None]
  - HALLUCINATION [None]
